FAERS Safety Report 7069465-3 (Version None)
Quarter: 2010Q4

REPORT INFORMATION
  Report Type: 
  Country: None (occurrence: None)
  Receive Date: 20101028
  Receipt Date: 20101019
  Transmission Date: 20110411
  Serious: Yes (Hospitalization, Other)
  Sender: FDA-Public Use
  Company Number: US-AMGEN-QUU439485

PATIENT

DRUGS (3)
  1. NPLATE [Suspect]
     Indication: IDIOPATHIC THROMBOCYTOPENIC PURPURA
     Dosage: 2 A?G/KG, UNK
     Dates: start: 20100728
  2. NPLATE [Suspect]
     Dates: start: 20100728
  3. LEVOFLOXACIN [Concomitant]
     Dosage: 500 MG, UNK
     Route: 042

REACTIONS (19)
  - ABDOMINAL MASS [None]
  - ABDOMINAL PAIN [None]
  - ABSCESS [None]
  - DIZZINESS [None]
  - FEELING ABNORMAL [None]
  - HAEMATOMA [None]
  - IDIOPATHIC THROMBOCYTOPENIC PURPURA [None]
  - ILEUS [None]
  - INCONTINENCE [None]
  - INTRA-ABDOMINAL HAEMATOMA [None]
  - LYMPHOMA [None]
  - MYELODYSPLASTIC SYNDROME [None]
  - NEUROPATHY PERIPHERAL [None]
  - PANCYTOPENIA [None]
  - PELVIC PAIN [None]
  - PROSTATE CANCER [None]
  - RENAL CYST [None]
  - THROMBOCYTOPENIA [None]
  - THROMBOSIS [None]
